FAERS Safety Report 4661453-7 (Version None)
Quarter: 2005Q2

REPORT INFORMATION
  Report Type: 
  Country: None (occurrence: None)
  Receive Date: 20050513
  Receipt Date: 20050418
  Transmission Date: 20051028
  Serious: Yes (Death)
  Sender: FDA-Public Use
  Company Number: GB-GLAXOSMITHKLINE-B0378423A

PATIENT
  Age: 51 Year
  Sex: Female
  Weight: 60 kg

DRUGS (2)
  1. PAROXETINE HCL [Suspect]
     Dosage: 20MG PER DAY
     Route: 048
     Dates: start: 20031201, end: 20050406
  2. PROZAC [Concomitant]
     Route: 065
     Dates: start: 20050413, end: 20050418

REACTIONS (6)
  - CLONUS [None]
  - COMA [None]
  - DEATH [None]
  - HALLUCINATION [None]
  - INFLUENZA LIKE ILLNESS [None]
  - METABOLIC ALKALOSIS [None]
